FAERS Safety Report 5771203-9 (Version None)
Quarter: 2008Q2

REPORT INFORMATION
  Report Type: 
  Country: None (occurrence: None)
  Receive Date: 20080613
  Receipt Date: 20080528
  Transmission Date: 20081010
  Serious: No
  Sender: FDA-Public Use
  Company Number: US-ABBOTT-08P-163-0455539-00

PATIENT
  Age: 69 Year
  Sex: Female
  Weight: 68.554 kg

DRUGS (12)
  1. HUMIRA [Suspect]
     Indication: CROHN'S DISEASE
     Route: 058
     Dates: start: 20080602
  2. INSULIN GLARGINE [Concomitant]
     Indication: DIABETES MELLITUS
     Route: 058
  3. INSULIN ASPART [Concomitant]
     Indication: DIABETES MELLITUS
     Route: 048
  4. INSULIN ASPART [Concomitant]
     Route: 048
  5. METFORMIN HYDROCHLORIDE [Concomitant]
     Indication: DIABETES MELLITUS
     Route: 048
  6. DILTIAZEM [Concomitant]
     Indication: HYPERTENSION
     Route: 048
  7. BETA-ACETYLDIGOXIN [Concomitant]
     Indication: CARDIAC DISORDER
     Route: 048
  8. FUROSEMIDE SODIUM [Concomitant]
     Indication: HYPERTENSION
     Route: 048
  9. POTASSIUM CHLORIDE [Concomitant]
     Indication: ELECTROLYTE SUBSTITUTION THERAPY
     Route: 048
  10. SERTRALINE [Concomitant]
     Indication: DEPRESSION
     Route: 048
  11. BUSPIRONE HYDROCHLORIDE [Concomitant]
     Indication: DRUG USE FOR UNKNOWN INDICATION
     Route: 048
  12. PREDNISONE TAB [Concomitant]
     Indication: DEPRESSION
     Route: 048

REACTIONS (2)
  - INJECTION SITE PAIN [None]
  - NEUROPATHY PERIPHERAL [None]
